FAERS Safety Report 16215200 (Version 1)
Quarter: 2019Q2

REPORT INFORMATION
  Report Type: Spontaneous
  Country: US (occurrence: US)
  Receive Date: 20190314
  Receipt Date: 20190314
  Transmission Date: 20190711
  Serious: No
  Sender: FDA-Public Use
  Company Number: None

PATIENT
  Age: 66 Year
  Sex: Male
  Weight: 91.17 kg

DRUGS (1)
  1. CLINDAMYCIN. [Suspect]
     Active Substance: CLINDAMYCIN
     Route: 048
     Dates: start: 20181214, end: 20181228

REACTIONS (5)
  - Erythema [None]
  - Pruritus [None]
  - Rash [None]
  - Urticaria [None]
  - Skin plaque [None]

NARRATIVE: CASE EVENT DATE: 20181217
